FAERS Safety Report 4518096-5 (Version None)
Quarter: 2004Q4

REPORT INFORMATION
  Report Type: 
  Country: None (occurrence: None)
  Receive Date: 20041130
  Receipt Date: 20041122
  Transmission Date: 20050328
  Serious: Yes (Other)
  Sender: FDA-Public Use
  Company Number: HQWYE629322NOV04

PATIENT
  Age: 1 Day
  Sex: Female

DRUGS (2)
  1. TRIQUILAR (LEVONORGESTEREL/ETHINYL ESTRADIOL, TABLET) [Suspect]
     Indication: ORAL CONTRACEPTION
     Dosage: 1 TABLET DAILY WITH 12 DAYS INTERVAL BETWEEN TWO PACKS
     Route: 015
     Dates: start: 20031001, end: 20031001
  2. DACTIL (PIPERIDOLATE HYDROCHLORIDE) [Concomitant]

REACTIONS (5)
  - ABORTION THREATENED [None]
  - CAESAREAN SECTION [None]
  - DRUG EXPOSURE DURING PREGNANCY [None]
  - POOR WEIGHT GAIN NEONATAL [None]
  - SMALL FOR DATES BABY [None]
